FAERS Safety Report 9490691 (Version 1)
Quarter: 2013Q3

REPORT INFORMATION
  Report Type: Report from Study
  Country: US (occurrence: US)
  Receive Date: 20130830
  Receipt Date: 20130830
  Transmission Date: 20140515
  Serious: Yes (Hospitalization)
  Sender: FDA-Public Use
  Company Number: US-009507513-1308USA011859

PATIENT
  Age: 81 Year
  Sex: Female

DRUGS (4)
  1. VORINOSTAT [Suspect]
     Indication: ACUTE MYELOID LEUKAEMIA
     Dosage: 500 MG, TID
     Route: 048
     Dates: start: 20130712, end: 20130714
  2. VORINOSTAT [Suspect]
     Dosage: 300 MG, QD
     Route: 048
     Dates: start: 20130715, end: 20130721
  3. TEMODAR [Suspect]
     Indication: ACUTE MYELOID LEUKAEMIA
     Dosage: 160 MG, QD
     Route: 048
     Dates: start: 20130628, end: 20130711
  4. TEMODAR [Suspect]
     Dosage: 320 MG, QD
     Route: 048
     Dates: start: 20130715, end: 20130721

REACTIONS (1)
  - Haemoptysis [Recovered/Resolved]
